FAERS Safety Report 11532175 (Version 1)
Quarter: 2015Q3

REPORT INFORMATION
  Report Type: Spontaneous
  Country: US (occurrence: US)
  Receive Date: 20150903
  Receipt Date: 20150903
  Transmission Date: 20151125
  Serious: No
  Sender: FDA-Public Use
  Company Number: US-ELI_LILLY_AND_COMPANY-US201112005881

PATIENT
  Sex: Female

DRUGS (3)
  1. BYETTA [Concomitant]
     Active Substance: EXENATIDE
  2. HUMALOG MIX75/25 [Suspect]
     Active Substance: INSULIN LISPRO
     Dosage: 25 U, QD
  3. HUMALOG MIX75/25 [Suspect]
     Active Substance: INSULIN LISPRO
     Indication: DIABETES MELLITUS
     Dosage: 25 U, QD

REACTIONS (5)
  - Blood glucose increased [Unknown]
  - Vomiting [Unknown]
  - Drug dose omission [Unknown]
  - Pain in extremity [Unknown]
  - Abdominal discomfort [Unknown]
